FAERS Safety Report 24050290 (Version 4)
Quarter: 2024Q4

REPORT INFORMATION
  Report Type: Spontaneous
  Country: JP (occurrence: JP)
  Receive Date: 20240704
  Receipt Date: 20241225
  Transmission Date: 20250114
  Serious: Yes (Hospitalization, Other)
  Sender: BRISTOL-MYERS SQUIBB COMPANY
  Company Number: JP-BRISTOL-MYERS SQUIBB COMPANY-2024-103851

PATIENT
  Age: 39 Year
  Sex: Female

DRUGS (8)
  1. YERVOY [Suspect]
     Active Substance: IPILIMUMAB
     Indication: Renal cancer
     Route: 041
  2. OPDIVO [Suspect]
     Active Substance: NIVOLUMAB
     Indication: Renal cancer
  3. CABOZANTINIB [Suspect]
     Active Substance: CABOZANTINIB
     Indication: Renal cancer
  4. CABOZANTINIB [Suspect]
     Active Substance: CABOZANTINIB
  5. CABOZANTINIB [Suspect]
     Active Substance: CABOZANTINIB
  6. CABOZANTINIB [Suspect]
     Active Substance: CABOZANTINIB
  7. CABOZANTINIB [Suspect]
     Active Substance: CABOZANTINIB
  8. EVEROLIMUS [Suspect]
     Active Substance: EVEROLIMUS
     Indication: Renal cancer

REACTIONS (8)
  - Hypoaesthesia [Unknown]
  - Renal cancer metastatic [Unknown]
  - Rash [Unknown]
  - Hypopituitarism [Unknown]
  - Back pain [Unknown]
  - Dyspnoea [Unknown]
  - Anaemia [Unknown]
  - Haemorrhagic ascites [Unknown]
